FAERS Safety Report 5170847-5 (Version None)
Quarter: 2006Q4

REPORT INFORMATION
  Report Type: 
  Country: None (occurrence: None)
  Receive Date: 20061206
  Receipt Date: 20061206
  Transmission Date: 20070319
  Serious: Yes (Other)
  Sender: FDA-Public Use
  Company Number: None

PATIENT
  Age: 62 Year
  Sex: Male
  Weight: 156.9 kg

DRUGS (1)
  1. PAXIL [Suspect]

REACTIONS (1)
  - DIARRHOEA [None]
